FAERS Safety Report 5889979-9 (Version None)
Quarter: 2008Q3

REPORT INFORMATION
  Report Type: 
  Country: None (occurrence: None)
  Receive Date: 20080919
  Receipt Date: 20080103
  Transmission Date: 20090109
  Serious: Yes (Other)
  Sender: FDA-Public Use
  Company Number: US-PFIZER INC-2008001452

PATIENT
  Sex: Female
  Weight: 93.181 kg

DRUGS (4)
  1. LIPITOR [Suspect]
     Indication: DIABETES MELLITUS
     Route: 048
     Dates: start: 20071201
  2. LIPITOR [Suspect]
     Indication: LOW DENSITY LIPOPROTEIN
  3. XALATAN [Suspect]
     Indication: GLAUCOMA
     Dates: start: 20030101
  4. TIMOPTIC [Concomitant]

REACTIONS (1)
  - INTRAOCULAR PRESSURE INCREASED [None]
